FAERS Safety Report 21864415 (Version 1)
Quarter: 2023Q1

REPORT INFORMATION
  Report Type: Report from Study
  Country: US (occurrence: US)
  Receive Date: 20230116
  Receipt Date: 20230116
  Transmission Date: 20230417
  Serious: No
  Sender: FDA-Public Use
  Company Number: US-ABBVIE-4234185

PATIENT
  Sex: Male

DRUGS (3)
  1. SKYRIZI [Suspect]
     Active Substance: RISANKIZUMAB-RZAA
     Indication: Psoriasis
     Dosage: WEEK 0
     Route: 058
     Dates: start: 20211209, end: 20221209
  2. SKYRIZI [Suspect]
     Active Substance: RISANKIZUMAB-RZAA
     Dosage: WEEK 4
     Dates: start: 20220106, end: 20220106
  3. SKYRIZI [Suspect]
     Active Substance: RISANKIZUMAB-RZAA
     Dates: start: 2022

REACTIONS (1)
  - Psoriasis [Unknown]
